FAERS Safety Report 8540047-7 (Version None)
Quarter: 2012Q3

REPORT INFORMATION
  Report Type: 
  Country: None (occurrence: None)
  Receive Date: 20120726
  Receipt Date: 20120725
  Transmission Date: 20120928
  Serious: Yes (Other)
  Sender: FDA-Public Use
  Company Number: US-ROCHE-782663

PATIENT
  Sex: Male
  Weight: 56.75 kg

DRUGS (9)
  1. CLINDAMYCIN [Concomitant]
  2. CLEOCIN T [Concomitant]
  3. ACCUTANE [Suspect]
     Indication: ACNE
     Route: 065
     Dates: start: 20031001, end: 20040401
  4. CLARINEX [Concomitant]
  5. AMNESTEEM [Suspect]
     Indication: PRODUCT USED FOR UNKNOWN INDICATION
     Route: 065
  6. ALBUTEROL [Concomitant]
  7. ACCUTANE [Suspect]
     Route: 065
     Dates: start: 20050901, end: 20060201
  8. TAZORAC [Concomitant]
  9. AMNESTEEM [Suspect]
     Route: 065
     Dates: start: 20050101, end: 20060101

REACTIONS (4)
  - COLITIS ULCERATIVE [None]
  - INFLAMMATORY BOWEL DISEASE [None]
  - XEROSIS [None]
  - STRESS [None]
